FAERS Safety Report 15340578 (Version 2)
Quarter: 2018Q3

REPORT INFORMATION
  Report Type: Report from Study
  Country: DE (occurrence: DE)
  Receive Date: 20180831
  Receipt Date: 20180904
  Transmission Date: 20181010
  Serious: Yes (Death, Life-Threatening, Hospitalization, Other)
  Sender: FDA-Public Use
  Company Number: PHHY2017DE119057

PATIENT
  Sex: Male
  Weight: 89 kg

DRUGS (17)
  1. VOTRIENT [Suspect]
     Active Substance: PAZOPANIB HYDROCHLORIDE
     Indication: METASTATIC RENAL CELL CARCINOMA
     Dosage: 800 MG, QD
     Route: 048
     Dates: start: 20170524, end: 20170807
  2. ZALDIAR [Concomitant]
     Active Substance: ACETAMINOPHEN\TRAMADOL HYDROCHLORIDE
     Indication: BACK PAIN
     Dosage: 37.5 MG, BID
     Route: 048
     Dates: start: 20170502
  3. GABAPENTIN. [Concomitant]
     Active Substance: GABAPENTIN
     Indication: PERIPHERAL ARTERIAL OCCLUSIVE DISEASE
     Dosage: 100 MG, TID
     Route: 048
     Dates: start: 20111209
  4. MARCOUMAR [Concomitant]
     Active Substance: PHENPROCOUMON
     Indication: PERIPHERAL ARTERY OCCLUSION
     Dosage: 3 MG, PRN
     Route: 048
  5. SPASMEX [Concomitant]
     Indication: LOWER URINARY TRACT SYMPTOMS
     Dosage: 15 MG, BID
     Route: 048
     Dates: start: 20141010
  6. RAMIPRIL. [Concomitant]
     Active Substance: RAMIPRIL
     Indication: HYPERTENSION
     Dosage: 5 MG, QD
     Route: 048
     Dates: start: 20140207
  7. SIMVASTATIN. [Concomitant]
     Active Substance: SIMVASTATIN
     Indication: HYPERCHOLESTEROLAEMIA
     Dosage: 40 MG, QD
     Route: 048
     Dates: start: 20090129
  8. JANUVIA [Concomitant]
     Active Substance: SITAGLIPTIN PHOSPHATE
     Indication: DIABETES MELLITUS
     Dosage: 128.48 MG, QD
     Route: 048
     Dates: start: 20160829
  9. VOTRIENT [Suspect]
     Active Substance: PAZOPANIB HYDROCHLORIDE
     Dosage: 400 MG, QD
     Route: 048
     Dates: start: 20170808, end: 20171025
  10. MARCUMAR [Concomitant]
     Active Substance: PHENPROCOUMON
     Indication: PERIPHERAL ARTERY OCCLUSION
     Dosage: 3 MG, PRN
     Route: 048
     Dates: start: 20081031
  11. LANTUS [Concomitant]
     Active Substance: INSULIN GLARGINE
     Indication: DIABETES MELLITUS
     Dosage: 20 IU, QD
     Route: 058
     Dates: start: 20160829
  12. TAMSULOSIN [Concomitant]
     Active Substance: TAMSULOSIN
     Indication: LOWER URINARY TRACT SYMPTOMS
     Dosage: 0.4 MG, QD
     Route: 048
     Dates: start: 20120622
  13. L THYROXIN JOD BETA [Concomitant]
     Indication: THYROIDECTOMY
     Dosage: 150 MG, QD
     Route: 048
     Dates: start: 20130912
  14. NOVAMINSULFON [Concomitant]
     Active Substance: METAMIZOLE
     Indication: BACK PAIN
     Dosage: 500 MG, QID
     Route: 048
     Dates: start: 20150904
  15. PRAMIPEXOLE. [Concomitant]
     Active Substance: PRAMIPEXOLE
     Indication: RESTLESS LEGS SYNDROME
     Dosage: 0.25 MG, QD
     Route: 048
     Dates: start: 20111012
  16. FINURAL [Concomitant]
     Active Substance: FINASTERIDE
     Indication: LOWER URINARY TRACT SYMPTOMS
     Dosage: 5 MG, QD
     Route: 048
     Dates: start: 20161107
  17. BRETARIS GENUAIR [Concomitant]
     Active Substance: ACLIDINIUM BROMIDE
     Indication: CHRONIC OBSTRUCTIVE PULMONARY DISEASE
     Dosage: 322 UG, PRN
     Route: 055

REACTIONS (22)
  - Tracheal disorder [Unknown]
  - Fatigue [Unknown]
  - Oliguria [Fatal]
  - Anuria [Fatal]
  - Dyspnoea [Recovering/Resolving]
  - Skin disorder [Unknown]
  - Oropharyngeal pain [Unknown]
  - Metastatic renal cell carcinoma [Fatal]
  - Malignant neoplasm progression [Fatal]
  - Dehydration [Fatal]
  - Decreased appetite [Unknown]
  - Hypogeusia [Not Recovered/Not Resolved]
  - Lymphadenopathy [Recovered/Resolved]
  - Weight decreased [Fatal]
  - Diarrhoea [Unknown]
  - Skin exfoliation [Unknown]
  - Erythema [Recovered/Resolved]
  - Vocal cord paralysis [Not Recovered/Not Resolved]
  - Swelling [Unknown]
  - Hair colour changes [Not Recovered/Not Resolved]
  - Blood pressure increased [Not Recovered/Not Resolved]
  - Dysgeusia [Unknown]

NARRATIVE: CASE EVENT DATE: 20170531
